FAERS Safety Report 16395551 (Version 1)
Quarter: 2019Q2

REPORT INFORMATION
  Report Type: Spontaneous
  Country: DE (occurrence: DE)
  Receive Date: 20190605
  Receipt Date: 20190605
  Transmission Date: 20190711
  Serious: Yes (Life-Threatening, Other)
  Sender: FDA-Public Use
  Company Number: DE-MYLANLABS-2019M1051431

PATIENT
  Age: 55 Year
  Sex: Female
  Weight: 78 kg

DRUGS (1)
  1. PIPERACILLIN/TAZOBACTAM [Suspect]
     Active Substance: PIPERACILLIN SODIUM\TAZOBACTAM SODIUM
     Indication: PNEUMONIA
     Dosage: 4.5 GRAM (2X4,5 GR SHORT INFUSION)
     Route: 042
     Dates: start: 20181013, end: 20181021

REACTIONS (2)
  - Pulmonary haemorrhage [Unknown]
  - Thrombocytopenia [Recovered/Resolved with Sequelae]

NARRATIVE: CASE EVENT DATE: 2018
